FAERS Safety Report 6468461-4 (Version None)
Quarter: 2009Q4

REPORT INFORMATION
  Report Type: 
  Country: None (occurrence: None)
  Receive Date: 20091202
  Receipt Date: 20091202
  Transmission Date: 20100525
  Serious: Yes (Other)
  Sender: FDA-Public Use
  Company Number: None

PATIENT
  Age: 50 Year
  Sex: Male

DRUGS (1)
  1. TUBERSOL [Suspect]
     Dates: start: 20091102

REACTIONS (2)
  - INJECTION SITE INDURATION [None]
  - INJECTION SITE SCAB [None]
